FAERS Safety Report 22177959 (Version 1)
Quarter: 2023Q2

REPORT INFORMATION
  Report Type: Spontaneous
  Country: CN (occurrence: None)
  Receive Date: 20230405
  Receipt Date: 20230405
  Transmission Date: 20230721
  Serious: Yes (Other)
  Sender: FDA-Public Use
  Company Number: 2023A075285

PATIENT
  Age: 9747 Day
  Sex: Female
  Weight: 55 kg

DRUGS (3)
  1. ESOMEPRAZOLE MAGNESIUM [Suspect]
     Active Substance: ESOMEPRAZOLE MAGNESIUM
     Indication: Gastrooesophageal reflux disease
     Route: 048
     Dates: start: 20230312, end: 20230314
  2. BUDESONIDE [Concomitant]
     Active Substance: BUDESONIDE
     Indication: Hypersensitivity
     Route: 048
  3. LORATADINE [Concomitant]
     Active Substance: LORATADINE
     Indication: Hypersensitivity
     Route: 048

REACTIONS (3)
  - Bronchospasm [Recovered/Resolved]
  - Dysphonia [Recovered/Resolved]
  - Cough [Recovered/Resolved]

NARRATIVE: CASE EVENT DATE: 20230313
